FAERS Safety Report 6016234-9 (Version None)
Quarter: 2008Q4

REPORT INFORMATION
  Report Type: 
  Country: None (occurrence: None)
  Receive Date: 20081222
  Receipt Date: 20081212
  Transmission Date: 20090506
  Serious: Yes (Hospitalization)
  Sender: FDA-Public Use
  Company Number: NO-AVENTIS-200821680GDDC

PATIENT
  Age: 48 Year
  Sex: Female

DRUGS (7)
  1. TAXOTERE [Suspect]
     Indication: BREAST CANCER
     Route: 042
  2. TAMOXIFEN [Suspect]
     Indication: BREAST CANCER
     Dates: start: 20081013
  3. AMLODIPINE [Concomitant]
     Indication: HYPERTENSION
  4. ENALAPRIL MALEATE [Concomitant]
     Indication: HYPERTENSION
  5. EPIRUBICIN [Concomitant]
     Indication: BREAST CANCER
  6. CYCLOPHOSPHAMIDE [Concomitant]
     Indication: BREAST CANCER
  7. FLUOROURACIL [Concomitant]
     Indication: BREAST CANCER

REACTIONS (2)
  - OPTIC ATROPHY [None]
  - PAPILLOEDEMA [None]
